FAERS Safety Report 13830972 (Version 5)
Quarter: 2018Q2

REPORT INFORMATION
  Report Type: Spontaneous
  Country: US (occurrence: US)
  Receive Date: 20170803
  Receipt Date: 20180425
  Transmission Date: 20180711
  Serious: Yes (Other)
  Sender: FDA-Public Use
  Company Number: US-ACTELION-A-US2017-157516

PATIENT
  Age: 76 Year
  Sex: Female
  Weight: 93.88 kg

DRUGS (4)
  1. REVATIO [Concomitant]
     Active Substance: SILDENAFIL CITRATE
  2. TRACLEER [Suspect]
     Active Substance: BOSENTAN
     Indication: PULMONARY ARTERIAL HYPERTENSION
     Dosage: 125 MG, BID
     Route: 048
  3. REMODULIN [Concomitant]
     Active Substance: TREPROSTINIL
  4. WARFARIN [Concomitant]
     Active Substance: WARFARIN

REACTIONS (7)
  - Osteoporosis [Unknown]
  - Arthritis [Unknown]
  - Hip surgery [Unknown]
  - Hyperthyroidism [Unknown]
  - Radioactive iodine therapy [Unknown]
  - Thyroid mass [Unknown]
  - Hypothyroidism [Unknown]
